FAERS Safety Report 24161644 (Version 3)
Quarter: 2024Q4

REPORT INFORMATION
  Report Type: Spontaneous
  Country: US (occurrence: US)
  Receive Date: 20240801
  Receipt Date: 20241015
  Transmission Date: 20250115
  Serious: Yes (Death)
  Sender: ROCHE
  Company Number: US-ROCHE-10000046094

PATIENT
  Age: 23 Year
  Sex: Male

DRUGS (11)
  1. ERIVEDGE [Suspect]
     Active Substance: VISMODEGIB
     Indication: Skin cancer
     Route: 048
     Dates: start: 20240529
  2. ATIVAN [Concomitant]
     Active Substance: LORAZEPAM
  3. SEROQUEL [Concomitant]
     Active Substance: QUETIAPINE FUMARATE
  4. TAMOXIFEN [Concomitant]
     Active Substance: TAMOXIFEN
  5. PROMETHAZINE [Concomitant]
     Active Substance: PROMETHAZINE HYDROCHLORIDE
  6. FAMOTIDINE [Concomitant]
     Active Substance: FAMOTIDINE
  7. QUETIAPINE [Concomitant]
     Active Substance: QUETIAPINE
  8. PAROXETINE [Concomitant]
     Active Substance: PAROXETINE
  9. DEXAMETHASONE [Concomitant]
     Active Substance: DEXAMETHASONE
  10. DRONABINOL [Concomitant]
     Active Substance: DRONABINOL
  11. ONDANSETRON [Concomitant]
     Active Substance: ONDANSETRON

REACTIONS (1)
  - Brain neoplasm [Fatal]

NARRATIVE: CASE EVENT DATE: 20240717
